FAERS Safety Report 10377657 (Version 1)
Quarter: 2014Q3

REPORT INFORMATION
  Report Type: Spontaneous
  Country: GB (occurrence: GB)
  Receive Date: 20140812
  Receipt Date: 20140812
  Transmission Date: 20150326
  Serious: Yes (Death, Other)
  Sender: FDA-Public Use
  Company Number: PHHY2014GB095680

PATIENT
  Age: 22 Year
  Sex: Male

DRUGS (1)
  1. POTASSIUM CHLORIDE. [Suspect]
     Active Substance: POTASSIUM CHLORIDE

REACTIONS (7)
  - Brain oedema [Unknown]
  - Death [Fatal]
  - Respiratory arrest [Unknown]
  - Herpes simplex encephalitis [Unknown]
  - General physical health deterioration [Unknown]
  - Accidental overdose [Unknown]
  - Cerebral infarction [Unknown]
